FAERS Safety Report 23066065 (Version 1)
Quarter: 2023Q4

REPORT INFORMATION
  Report Type: Spontaneous
  Country: US (occurrence: US)
  Receive Date: 20231014
  Receipt Date: 20231014
  Transmission Date: 20240110
  Serious: Yes (Other)
  Sender: FDA-Public Use
  Company Number: US-TEVA-2023-US-2933789

PATIENT
  Age: 79 Year
  Sex: Male

DRUGS (2)
  1. LORAZEPAM [Suspect]
     Active Substance: LORAZEPAM
     Indication: Sleep disorder
     Route: 065
     Dates: start: 2023
  2. LORAZEPAM [Suspect]
     Active Substance: LORAZEPAM
     Indication: Anxiety

REACTIONS (7)
  - Idiopathic pulmonary fibrosis [Unknown]
  - Pulmonary fibrosis [Unknown]
  - Adverse drug reaction [Unknown]
  - Rash [Unknown]
  - Pruritus [Unknown]
  - Insomnia [Unknown]
  - Hyperthermia [Unknown]

NARRATIVE: CASE EVENT DATE: 20230101
